FAERS Safety Report 5806671-7 (Version None)
Quarter: 2008Q3

REPORT INFORMATION
  Report Type: 
  Country: None (occurrence: None)
  Receive Date: 20080710
  Receipt Date: 20080707
  Transmission Date: 20090109
  Serious: Yes (Hospitalization)
  Sender: FDA-Public Use
  Company Number: US-MERCK-0804USA04798

PATIENT
  Age: 87 Year
  Sex: Female
  Weight: 68 kg

DRUGS (5)
  1. JANUVIA [Suspect]
     Indication: DIABETES MELLITUS
     Route: 048
     Dates: end: 20071101
  2. JANUVIA [Suspect]
     Route: 048
     Dates: start: 20070601
  3. PLAVIX [Concomitant]
     Route: 065
  4. AMITRIPTYLINE HYDROCHLORIDE [Concomitant]
     Route: 065
  5. SINGULAIR [Concomitant]
     Route: 065

REACTIONS (5)
  - FACE OEDEMA [None]
  - NERVE INJURY [None]
  - RHINORRHOEA [None]
  - TOOTH ABSCESS [None]
  - TOOTH DISORDER [None]
